FAERS Safety Report 17996235 (Version 1)
Quarter: 2020Q3

REPORT INFORMATION
  Report Type: Spontaneous
  Country: CN (occurrence: CN)
  Receive Date: 20200708
  Receipt Date: 20200708
  Transmission Date: 20201103
  Serious: Yes (Other)
  Sender: FDA-Public Use
  Company Number: CN-ELI_LILLY_AND_COMPANY-CN202006012142

PATIENT
  Age: 59 Year
  Sex: Female

DRUGS (5)
  1. CYSTEINE [Concomitant]
     Active Substance: CYSTEINE
  2. ALIMTA [Suspect]
     Active Substance: PEMETREXED DISODIUM
     Indication: LUNG NEOPLASM MALIGNANT
     Dosage: 800 MG, SINGLE
     Route: 042
     Dates: start: 20200609, end: 20200609
  3. NUO XIN [Suspect]
     Active Substance: CISPLATIN
     Indication: LUNG NEOPLASM MALIGNANT
     Dosage: 30 MG, DAILY
     Route: 042
     Dates: start: 20200609, end: 20200612
  4. MONOAMMONIUM GLYCYRRHIZINATE [Concomitant]
     Active Substance: AMMONIUM GLYCYRRHIZATE
  5. ENDOSTAR [Suspect]
     Active Substance: ENDOSTATIN
     Indication: LUNG NEOPLASM MALIGNANT
     Dosage: 210 MG, DAILY
     Route: 042
     Dates: start: 20200609, end: 20200617

REACTIONS (3)
  - Febrile neutropenia [Recovering/Resolving]
  - Hepatic function abnormal [Recovering/Resolving]
  - Renal impairment [Recovering/Resolving]

NARRATIVE: CASE EVENT DATE: 20200614
